FAERS Safety Report 18752956 (Version 2)
Quarter: 2021Q1

REPORT INFORMATION
  Report Type: Spontaneous
  Country: US (occurrence: US)
  Receive Date: 20210118
  Receipt Date: 20210320
  Transmission Date: 20210419
  Serious: Yes (Death, Other)
  Sender: FDA-Public Use
  Company Number: US-TAKEDA-2021TUS002660

PATIENT
  Age: 71 Year
  Sex: Female
  Weight: 75.8 kg

DRUGS (13)
  1. NINLARO [Suspect]
     Active Substance: IXAZOMIB CITRATE
     Indication: PLASMA CELL MYELOMA
     Dosage: 2.3 MILLIGRAM, 1/WEEK
     Route: 048
     Dates: start: 20190518
  2. LORAZEPAM. [Concomitant]
     Active Substance: LORAZEPAM
     Dosage: UNK
  3. ACYCLOVIR [ACICLOVIR] [Concomitant]
     Active Substance: ACYCLOVIR
     Dosage: UNK
  4. METOPROLOL SUCCINATE. [Concomitant]
     Active Substance: METOPROLOL SUCCINATE
     Dosage: UNK
  5. POTASSIUM [Concomitant]
     Active Substance: POTASSIUM
     Dosage: UNK
  6. TEMAZEPAM. [Concomitant]
     Active Substance: TEMAZEPAM
     Dosage: UNK
  7. LANSOPRAZOLE. [Concomitant]
     Active Substance: LANSOPRAZOLE
     Dosage: UNK
  8. VENCLEXTA [Concomitant]
     Active Substance: VENETOCLAX
     Dosage: UNK
  9. DEXAMETHASONE. [Concomitant]
     Active Substance: DEXAMETHASONE
     Dosage: UNK
  10. LOSARTAN. [Concomitant]
     Active Substance: LOSARTAN
     Dosage: UNK
  11. EXJADE [Concomitant]
     Active Substance: DEFERASIROX
     Dosage: UNK
  12. CRESTOR [Concomitant]
     Active Substance: ROSUVASTATIN CALCIUM
     Dosage: UNK
  13. IBUPROFEN. [Concomitant]
     Active Substance: IBUPROFEN
     Dosage: UNK

REACTIONS (1)
  - Neoplasm malignant [Fatal]

NARRATIVE: CASE EVENT DATE: 20210104
